FAERS Safety Report 9630886 (Version 1)
Quarter: 2013Q4

REPORT INFORMATION
  Report Type: Spontaneous
  Country: US (occurrence: None)
  Receive Date: 20131016
  Receipt Date: 20131016
  Transmission Date: 20140711
  Serious: Yes (Other)
  Sender: FDA-Public Use
  Company Number: None

PATIENT
  Age: 35 Year
  Sex: Female
  Weight: 58.97 kg

DRUGS (1)
  1. VICODIN [Suspect]
     Indication: PROCEDURAL PAIN
     Dates: start: 20131009, end: 20131015

REACTIONS (5)
  - Agitation [None]
  - Aggression [None]
  - Aggression [None]
  - Paranoia [None]
  - Judgement impaired [None]
